FAERS Safety Report 5896820-7 (Version None)
Quarter: 2008Q3

REPORT INFORMATION
  Report Type: 
  Country: None (occurrence: None)
  Receive Date: 20080924
  Receipt Date: 20071107
  Transmission Date: 20090109
  Serious: Yes (Other)
  Sender: FDA-Public Use
  Company Number: US-ASTRAZENECA-2007UW25919

PATIENT
  Age: 45 Year
  Sex: Female
  Weight: 109.8 kg

DRUGS (13)
  1. SEROQUEL [Suspect]
     Indication: SCHIZOAFFECTIVE DISORDER
     Route: 048
     Dates: start: 20030101
  2. SEROQUEL [Suspect]
     Route: 048
  3. SEROQUEL [Suspect]
     Dosage: 200 MG IN THE AM, 600 MG IN PM
     Route: 048
  4. VITAMIN D [Concomitant]
  5. POTASSIUM CHLORIDE [Concomitant]
  6. KLONOPIN [Concomitant]
  7. GLUCOPHAGE [Concomitant]
  8. GLUCOTROL [Concomitant]
  9. VYTORIN [Concomitant]
  10. ROCERON [Concomitant]
  11. RESTASIS [Concomitant]
  12. DEMASMOOTH [Concomitant]
  13. ACCUPRIL [Concomitant]

REACTIONS (5)
  - ANXIETY [None]
  - HALLUCINATION, VISUAL [None]
  - HEART RATE INCREASED [None]
  - MALAISE [None]
  - PALPITATIONS [None]
